FAERS Safety Report 7689290-X (Version None)
Quarter: 2011Q3

REPORT INFORMATION
  Report Type: 
  Country: None (occurrence: None)
  Receive Date: 20110817
  Receipt Date: 20110811
  Transmission Date: 20111222
  Serious: Yes (Other)
  Sender: FDA-Public Use
  Company Number: US-PFIZER INC-2011186104

PATIENT
  Sex: Female

DRUGS (1)
  1. PROPRANOLOL HCL [Suspect]
     Dosage: UNK

REACTIONS (5)
  - DYSPNOEA [None]
  - HYPOTENSION [None]
  - MALAISE [None]
  - BRONCHIECTASIS [None]
  - ASTHMA [None]
